FAERS Safety Report 10074732 (Version 1)
Quarter: 2014Q2

REPORT INFORMATION
  Report Type: Spontaneous
  Country: JP (occurrence: JP)
  Receive Date: 20140414
  Receipt Date: 20140414
  Transmission Date: 20141212
  Serious: Yes (Other)
  Sender: FDA-Public Use
  Company Number: JP-PFIZER INC-2014097225

PATIENT
  Age: 64 Year
  Sex: Female

DRUGS (2)
  1. SALAZOPYRIN [Suspect]
     Indication: COLITIS ULCERATIVE
     Dosage: 500 MG, DAILY
     Route: 048
     Dates: start: 20140222
  2. SALAZOPYRIN [Suspect]
     Dosage: 1000 MG, DAILY
     Route: 048

REACTIONS (8)
  - Pain [Recovered/Resolved]
  - Swelling face [Recovering/Resolving]
  - Peripheral swelling [Not Recovered/Not Resolved]
  - Erythema [Unknown]
  - Joint swelling [Unknown]
  - Eye pain [Unknown]
  - Asthenopia [Unknown]
  - Paraesthesia [Unknown]
